FAERS Safety Report 10146204 (Version 1)
Quarter: 2014Q2

REPORT INFORMATION
  Report Type: Spontaneous
  Country: US (occurrence: None)
  Receive Date: 20140429
  Receipt Date: 20140429
  Transmission Date: 20141212
  Serious: Yes (Hospitalization)
  Sender: FDA-Public Use
  Company Number: 2307268

PATIENT
  Age: 63 Year
  Sex: Male

DRUGS (7)
  1. FENTANYL CITRATE [Suspect]
     Indication: PAIN
     Route: 041
  2. HYDROMORPHONE HYDROCHLORIDE [Suspect]
     Indication: PAIN
  3. OXYMORPHONE [Suspect]
     Indication: BREAKTHROUGH PAIN
     Dosage: 3 MG, 1 HOUR, INTRAVENOUS (NOT OTHERWISE SPECIFIED)
     Route: 042
  4. DILAUDID [Suspect]
     Indication: BREAKTHROUGH PAIN
  5. DILAUDID [Suspect]
     Indication: RENAL COLIC
  6. METHADONE [Suspect]
     Indication: PAIN
  7. OCTREOTIDE [Concomitant]

REACTIONS (2)
  - Hyperaesthesia [None]
  - Back pain [None]
